APPROVED DRUG PRODUCT: NYSTATIN AND TRIAMCINOLONE ACETONIDE
Active Ingredient: NYSTATIN; TRIAMCINOLONE ACETONIDE
Strength: 100,000 UNITS/GM;0.1%
Dosage Form/Route: CREAM;TOPICAL
Application: A062186 | Product #002
Applicant: PERRIGO NEW YORK INC
Approved: Jun 6, 1985 | RLD: No | RS: No | Type: DISCN